FAERS Safety Report 24814976 (Version 1)
Quarter: 2025Q1

REPORT INFORMATION
  Report Type: Spontaneous
  Country: AU (occurrence: AU)
  Receive Date: 20250107
  Receipt Date: 20250107
  Transmission Date: 20250409
  Serious: Yes (Hospitalization, Other)
  Sender: VERITY PHARMACEUTICALS INC.
  Company Number: AU-VER-202400005

PATIENT
  Age: 82 Year
  Sex: Male

DRUGS (1)
  1. BACILLUS CALMETTE-GUERIN SUBSTRAIN RUSSIAN BCG-I LIVE ANTIGEN [Suspect]
     Active Substance: BACILLUS CALMETTE-GUERIN SUBSTRAIN RUSSIAN BCG-I LIVE ANTIGEN
     Indication: Bladder transitional cell carcinoma
     Route: 043
     Dates: start: 2016

REACTIONS (1)
  - Disseminated Bacillus Calmette-Guerin infection [Unknown]
